FAERS Safety Report 22881590 (Version 3)
Quarter: 2023Q4

REPORT INFORMATION
  Report Type: Spontaneous
  Country: US (occurrence: US)
  Receive Date: 20230830
  Receipt Date: 20231004
  Transmission Date: 20240109
  Serious: Yes (Other)
  Sender: FDA-Public Use
  Company Number: US-BIOCODEX2-2023001172

PATIENT
  Sex: Female
  Weight: 55.4 kg

DRUGS (8)
  1. DIACOMIT [Suspect]
     Active Substance: STIRIPENTOL
     Indication: Severe myoclonic epilepsy of infancy
     Dosage: IN TOTAL, 1250 MG BY MOUTH TWICE DAILY
     Route: 048
     Dates: start: 20230615
  2. DIACOMIT [Suspect]
     Active Substance: STIRIPENTOL
     Indication: Severe myoclonic epilepsy of infancy
     Dosage: IN TOTAL, 1250 MG BY MOUTH TWICE DAILY
     Route: 048
     Dates: start: 20230615
  3. DIACOMIT [Suspect]
     Active Substance: STIRIPENTOL
     Indication: Severe myoclonic epilepsy of infancy
     Dosage: 250 MG ORALLY ONCE DAILY?A TOTAL OF 750MG ONCE DAILY
     Route: 048
     Dates: start: 20230615
  4. DIACOMIT [Suspect]
     Active Substance: STIRIPENTOL
     Indication: Severe myoclonic epilepsy of infancy
     Dosage: 500 MG ORALLY ONCE DAILY?A TOTAL OF 750MG ONCE DAILY
     Route: 048
     Dates: start: 20230615
  5. CLOBAZAM [Concomitant]
     Active Substance: CLOBAZAM
     Indication: Severe myoclonic epilepsy of infancy
     Dosage: 7.5MG QHS
     Route: 048
  6. DEPAKOTE [Concomitant]
     Active Substance: DIVALPROEX SODIUM
     Indication: Seizure
     Dosage: 125 AND 250MG DAILY
     Route: 048
  7. BRIVIACT [Concomitant]
     Active Substance: BRIVARACETAM
     Indication: Seizure
     Dosage: 25MG BID
     Route: 048
  8. XCOPRI [Concomitant]
     Active Substance: CENOBAMATE
     Indication: Seizure
     Route: 048
     Dates: end: 20230409

REACTIONS (8)
  - Partial seizures [Recovered/Resolved]
  - Generalised tonic-clonic seizure [Recovered/Resolved]
  - Abdominal pain upper [Unknown]
  - Appetite disorder [Unknown]
  - Alopecia [Unknown]
  - Weight increased [Unknown]
  - Fatigue [Unknown]
  - Product use issue [Unknown]

NARRATIVE: CASE EVENT DATE: 20230716
